FAERS Safety Report 9771291 (Version 2)
Quarter: 2013Q4

REPORT INFORMATION
  Report Type: Spontaneous
  Country: JP (occurrence: JP)
  Receive Date: 20131218
  Receipt Date: 20131218
  Transmission Date: 20140711
  Serious: Yes (Other)
  Sender: FDA-Public Use
  Company Number: JP-GILEAD-2013-0088147

PATIENT
  Age: 42 Year
  Sex: Male

DRUGS (6)
  1. TRUVADA [Suspect]
     Indication: HIV INFECTION
     Dosage: UNK
     Route: 048
     Dates: start: 200702, end: 201111
  2. REYATAZ [Suspect]
     Indication: HIV INFECTION
     Dosage: 2 DF, QD
     Route: 048
     Dates: start: 200702, end: 201301
  3. NORVIR [Suspect]
     Indication: HIV INFECTION
     Dosage: 1 DF, QD
     Route: 048
     Dates: start: 200702, end: 201301
  4. AMLODIN [Suspect]
     Indication: HYPERTENSION
     Route: 048
     Dates: end: 201301
  5. TOLEDOMIN [Concomitant]
     Indication: DEPRESSION
     Route: 048
     Dates: end: 201301
  6. EPZICOM [Concomitant]
     Dosage: UNK
     Dates: start: 201110

REACTIONS (2)
  - Osteonecrosis [Recovered/Resolved]
  - Blood creatinine increased [Recovered/Resolved]
